FAERS Safety Report 25118674 (Version 1)
Quarter: 2025Q1

REPORT INFORMATION
  Report Type: Spontaneous
  Country: US (occurrence: US)
  Receive Date: 20250325
  Receipt Date: 20250325
  Transmission Date: 20250408
  Serious: No
  Sender: BRISTOL-MYERS SQUIBB COMPANY
  Company Number: US-BRISTOL-MYERS SQUIBB COMPANY-2025-039615

PATIENT
  Age: 61 Year
  Sex: Female

DRUGS (1)
  1. POMALYST [Suspect]
     Active Substance: POMALIDOMIDE
     Indication: Monoclonal gammopathy
     Dosage: TAKE 1 CAPSULE BY MOUTH WITH WATER ON EMPTY STOMACH EVERY OTHER DAY DAYS 1-21 OF 28 DAY CYCLE DONT B
     Route: 048
     Dates: end: 20250221

REACTIONS (1)
  - Off label use [Unknown]
